FAERS Safety Report 4802328-X (Version None)
Quarter: 2005Q4

REPORT INFORMATION
  Report Type: 
  Country: None (occurrence: None)
  Receive Date: 20051012
  Receipt Date: 20051005
  Transmission Date: 20060501
  Serious: Yes (Other)
  Sender: FDA-Public Use
  Company Number: HQWYE872706OCT05

PATIENT
  Age: 25 Year
  Sex: Male

DRUGS (5)
  1. RAPAMUNE [Suspect]
     Indication: PROPHYLAXIS AGAINST TRANSPLANT REJECTION
     Dosage: 4 + 5 MG 1X PER 1 DAY ORAL
     Route: 048
     Dates: start: 20050704, end: 20050714
  2. RAPAMUNE [Suspect]
     Indication: PROPHYLAXIS AGAINST TRANSPLANT REJECTION
     Dosage: 4 + 5 MG 1X PER 1 DAY ORAL
     Route: 048
     Dates: start: 20050715, end: 20050906
  3. RAPAMUNE [Suspect]
     Indication: PROPHYLAXIS AGAINST TRANSPLANT REJECTION
     Dosage: 4 + 5 MG 1X PER 1 DAY ORAL
     Route: 048
     Dates: start: 20050907
  4. CYCLOSPORINE [Concomitant]
  5. PREDNISONE [Concomitant]

REACTIONS (4)
  - COMPLICATIONS OF TRANSPLANTED KIDNEY [None]
  - DIALYSIS [None]
  - HAEMOGLOBIN DECREASED [None]
  - RENAL IMPAIRMENT [None]
